FAERS Safety Report 5383791-5 (Version None)
Quarter: 2007Q3

REPORT INFORMATION
  Report Type: 
  Country: None (occurrence: None)
  Receive Date: 20070711
  Receipt Date: 20070703
  Transmission Date: 20080115
  Serious: Yes (Other)
  Sender: FDA-Public Use
  Company Number: PHBS2007JP07969

PATIENT
  Age: 81 Year
  Sex: Male

DRUGS (2)
  1. LAMISIL [Suspect]
     Indication: NAIL TINEA
     Dosage: 125 MG/DAY
     Route: 048
     Dates: start: 20061205, end: 20061226
  2. RINDERON [Concomitant]
     Indication: ADRENAL INSUFFICIENCY
     Dosage: 1 MG/DAY
     Route: 048

REACTIONS (6)
  - ANOREXIA [None]
  - EYE DISORDER [None]
  - GLAUCOMA [None]
  - GLAUCOMA SURGERY [None]
  - INTRAOCULAR PRESSURE INCREASED [None]
  - VISUAL ACUITY REDUCED [None]
